FAERS Safety Report 18667962 (Version 1)
Quarter: 2020Q4

REPORT INFORMATION
  Report Type: Spontaneous
  Country: CA (occurrence: CA)
  Receive Date: 20201228
  Receipt Date: 20201228
  Transmission Date: 20210114
  Serious: Yes (Other)
  Sender: FDA-Public Use
  Company Number: CA-ORION CORPORATION ORION PHARMA-20_00012318

PATIENT
  Age: 79 Year
  Sex: Female

DRUGS (1)
  1. METHOTREXATE (TRADE NAME UNKNOWN) [Suspect]
     Active Substance: METHOTREXATE
     Indication: PRODUCT USED FOR UNKNOWN INDICATION
     Route: 065

REACTIONS (8)
  - Obliterative bronchiolitis [Unknown]
  - Drug intolerance [Unknown]
  - Fibrosis [Unknown]
  - Lung disorder [Unknown]
  - Joint injury [Unknown]
  - Contraindicated product administered [Unknown]
  - Alveolitis [Unknown]
  - Mixed connective tissue disease [Unknown]
